FAERS Safety Report 17853032 (Version 3)
Quarter: 2021Q1

REPORT INFORMATION
  Report Type: Spontaneous
  Country: FR (occurrence: FR)
  Receive Date: 20200603
  Receipt Date: 20210205
  Transmission Date: 20210419
  Serious: Yes (Congenital Anomaly, Other)
  Sender: FDA-Public Use
  Company Number: FR-AUROBINDO-AUR-APL-2020-026496

PATIENT
  Age: 10 Month
  Sex: Female
  Weight: 3 kg

DRUGS (7)
  1. VALPROIC ACID. [Suspect]
     Active Substance: VALPROIC ACID
     Dosage: 1250 MILLIGRAM, ONCE A DAY
     Route: 064
     Dates: start: 200609, end: 20061208
  2. DEPAKINE [Suspect]
     Active Substance: VALPROATE SODIUM
     Indication: PRODUCT USED FOR UNKNOWN INDICATION
     Dosage: UNK
     Route: 064
     Dates: start: 200609, end: 200609
  3. VALPROIC ACID. [Suspect]
     Active Substance: VALPROIC ACID
     Dosage: 1250 MILLIGRAM, ONCE A DAY
     Route: 064
     Dates: start: 200610, end: 20061208
  4. SPECIAFOLDINE [Concomitant]
     Active Substance: FOLIC ACID
     Indication: PROPHYLAXIS
     Dosage: UNK
     Route: 064
     Dates: start: 200604, end: 200605
  5. DEPAKINE [Suspect]
     Active Substance: VALPROATE SODIUM
     Dosage: UNK
     Route: 064
     Dates: start: 20060927
  6. VALPROIC ACID. [Suspect]
     Active Substance: VALPROIC ACID
     Indication: PRODUCT USED FOR UNKNOWN INDICATION
     Dosage: 1000 MILLIGRAM, ONCE A DAY
     Route: 064
     Dates: start: 200603, end: 200606
  7. VALPROIC ACID. [Suspect]
     Active Substance: VALPROIC ACID
     Dosage: 1000 MILLIGRAM, ONCE A DAY
     Route: 064
     Dates: start: 200603, end: 200609

REACTIONS (54)
  - Autism spectrum disorder [Unknown]
  - Spinal cord disorder [Unknown]
  - Joint laxity [Unknown]
  - Speech disorder developmental [Unknown]
  - Disturbance in attention [Unknown]
  - Hypotonia [Unknown]
  - Learning disorder [Unknown]
  - Dysgraphia [Unknown]
  - Cognitive disorder [Unknown]
  - Attention deficit hyperactivity disorder [Unknown]
  - Fine motor skill dysfunction [Unknown]
  - Tooth disorder [Unknown]
  - Disorientation [Unknown]
  - Psychiatric symptom [Unknown]
  - Balance disorder [Unknown]
  - Psychomotor skills impaired [Unknown]
  - Motor developmental delay [Unknown]
  - Urinary incontinence [Unknown]
  - Spine malformation [Unknown]
  - Memory impairment [Unknown]
  - Visual impairment [Unknown]
  - Urinary tract infection [Unknown]
  - Lacrimal duct procedure [Unknown]
  - Upper respiratory tract infection [Unknown]
  - Gross motor delay [Unknown]
  - Limb malformation [Unknown]
  - Syringomyelia [Unknown]
  - Binocular eye movement disorder [Unknown]
  - Scoliosis [Unknown]
  - Ear disorder [Unknown]
  - Speech disorder [Unknown]
  - Social (pragmatic) communication disorder [Unknown]
  - Foetal anticonvulsant syndrome [Unknown]
  - Visual tracking test abnormal [Unknown]
  - Musculoskeletal stiffness [Unknown]
  - Foetal exposure during pregnancy [Unknown]
  - Enuresis [Unknown]
  - Clumsiness [Unknown]
  - Hand-eye coordination impaired [Unknown]
  - Floating patella [Unknown]
  - Fatigue [Unknown]
  - Pain in extremity [Unknown]
  - Abdominal lymphadenopathy [Unknown]
  - Behaviour disorder [Unknown]
  - Dysmorphism [Unknown]
  - Eye disorder [Unknown]
  - Anxiety [Unknown]
  - Disease recurrence [Unknown]
  - Orthodontic procedure [Unknown]
  - Neurogenic bladder [Unknown]
  - Foot deformity [Unknown]
  - Intellectual disability [Unknown]
  - Micturition disorder [Unknown]
  - Nasal disorder [Unknown]

NARRATIVE: CASE EVENT DATE: 20061208
